FAERS Safety Report 5049334-0 (Version None)
Quarter: 2006Q3

REPORT INFORMATION
  Report Type: 
  Country: None (occurrence: None)
  Receive Date: 20060707
  Receipt Date: 20060627
  Transmission Date: 20061208
  Serious: Yes (Hospitalization)
  Sender: FDA-Public Use
  Company Number: S06-USA-02282-01

PATIENT
  Age: 52 Year
  Sex: Female

DRUGS (11)
  1. THYROLAR-1 [Suspect]
     Indication: HYPOTHYROIDISM
     Dosage: 1.25 TABLET QD PO
     Route: 048
     Dates: start: 20060101, end: 20060101
  2. THYROLAR-1 [Suspect]
     Indication: HYPOTHYROIDISM
     Dosage: 1.25 TABLET PO
     Route: 048
     Dates: start: 20051201, end: 20051201
  3. THYROLAR-1 [Suspect]
     Indication: HYPOTHYROIDISM
     Dosage: 1 TABLET TIW PO
     Route: 048
     Dates: start: 20051201, end: 20051201
  4. THYROLAR-1 [Suspect]
     Indication: HYPOTHYROIDISM
     Dosage: 1.25 TABLET PO
     Route: 048
     Dates: start: 20051201, end: 20060101
  5. THYROLAR-1 [Suspect]
     Indication: HYPOTHYROIDISM
     Dosage: 1 TABLET TIW PO
     Route: 048
     Dates: start: 20051201, end: 20060101
  6. THYROLAR-1 [Suspect]
     Indication: HYPOTHYROIDISM
     Dosage: 1.25 TABLET PO
     Route: 048
     Dates: start: 20060101
  7. THYROLAR-1 [Suspect]
     Indication: HYPOTHYROIDISM
     Dosage: 1 TABLET TIW PO
     Route: 048
     Dates: start: 20060101
  8. THYROID TAB [Suspect]
     Indication: HYPOTHYROIDISM
     Dosage: 15 MG QD PO
     Route: 048
     Dates: start: 20051201, end: 20051201
  9. TIKOSYN [Concomitant]
  10. MESTINON [Concomitant]
  11. PREMARIN [Concomitant]

REACTIONS (9)
  - ANXIETY [None]
  - BLOOD THYROID STIMULATING HORMONE INCREASED [None]
  - FEELING JITTERY [None]
  - INSOMNIA [None]
  - MYASTHENIA GRAVIS CRISIS [None]
  - TACHYCARDIA [None]
  - TEMPERATURE INTOLERANCE [None]
  - TRI-IODOTHYRONINE DECREASED [None]
  - TRI-IODOTHYRONINE UPTAKE DECREASED [None]
